FAERS Safety Report 4434179-2 (Version None)
Quarter: 2004Q3

REPORT INFORMATION
  Report Type: 
  Country: None (occurrence: None)
  Receive Date: 20040825
  Receipt Date: 20040809
  Transmission Date: 20050211
  Serious: Yes (Hospitalization)
  Sender: FDA-Public Use
  Company Number: S04-GER-01458-01

PATIENT
  Age: 38 Year
  Sex: Female

DRUGS (7)
  1. CITALOPRAM HYDROBROMIDE [Suspect]
     Indication: DEPRESSION
     Dosage: 30 MG QD PO
     Route: 048
     Dates: start: 20040301, end: 20040327
  2. CITALOPRAM HYDROBROMIDE [Suspect]
     Indication: DEPRESSION
     Dosage: 10 MG QD PO
     Route: 048
     Dates: start: 20040318, end: 20040301
  3. CITALOPRAM HYDROBROMIDE [Suspect]
     Indication: DEPRESSION
     Dosage: 20 MG QD PO
     Route: 048
     Dates: start: 20040301, end: 20040301
  4. ZYPREXA [Concomitant]
  5. SEROQUEL [Concomitant]
  6. AKINETON [Concomitant]
  7. LORAZEPAM [Concomitant]

REACTIONS (18)
  - BLOOD CHLORIDE DECREASED [None]
  - BLOOD CREATINE PHOSPHOKINASE INCREASED [None]
  - BLOOD GLUCOSE INCREASED [None]
  - COMA [None]
  - EUPHORIC MOOD [None]
  - HAEMATOCRIT DECREASED [None]
  - HAEMOGLOBIN DECREASED [None]
  - HYPONATRAEMIA [None]
  - ISCHAEMIA [None]
  - MYDRIASIS [None]
  - NEOPLASM [None]
  - OEDEMA [None]
  - PARANOIA [None]
  - RED BLOOD CELL COUNT DECREASED [None]
  - SOMNOLENCE [None]
  - STATUS EPILEPTICUS [None]
  - VOMITING [None]
  - WHITE BLOOD CELL COUNT DECREASED [None]
